FAERS Safety Report 22379194 (Version 1)
Quarter: 2023Q2

REPORT INFORMATION
  Report Type: Report from Study
  Country: GB (occurrence: GB)
  Receive Date: 20230529
  Receipt Date: 20230529
  Transmission Date: 20230722
  Serious: Yes (Death, Disabling, Other)
  Sender: FDA-Public Use
  Company Number: GB-JNJFOC-20230405798

PATIENT
  Age: 38 Year
  Sex: Female
  Weight: 45 kg

DRUGS (13)
  1. BEDAQUILINE [Suspect]
     Active Substance: BEDAQUILINE
     Indication: Tuberculosis
     Route: 048
     Dates: start: 20220825, end: 20221111
  2. AMIKACIN [Concomitant]
     Active Substance: AMIKACIN
     Indication: Mycobacterial infection
     Dosage: NEBULISATION
     Route: 042
     Dates: start: 2021, end: 202202
  3. AVIBACTAM SODIUM\CEFTAZIDIME [Concomitant]
     Active Substance: AVIBACTAM SODIUM\CEFTAZIDIME
     Indication: Mycobacterial infection
     Dosage: LAST ADMINISTRATION DATE: NOV-2022
     Route: 042
     Dates: start: 202107
  4. APREPITANT [Concomitant]
     Active Substance: APREPITANT
     Indication: Nausea
     Route: 048
     Dates: start: 20220904, end: 20221021
  5. AZITHROMYCIN [Concomitant]
     Active Substance: AZITHROMYCIN
     Indication: Mycobacterial infection
     Dosage: LAST ADMINISTRATION DATE: NOV-2022
     Route: 048
     Dates: start: 202105
  6. CARBIMAZOLE [Concomitant]
     Active Substance: CARBIMAZOLE
     Indication: Hyperthyroidism
     Dosage: 15 MG } 20 MG
     Route: 048
     Dates: start: 20220930, end: 20221111
  7. CLOFAZIMINE [Concomitant]
     Active Substance: CLOFAZIMINE
     Indication: Mycobacterial infection
     Dosage: LAST ADMINISTRATION DATE: NOV-2022
     Route: 048
     Dates: start: 202107
  8. MEROPENEM [Concomitant]
     Active Substance: MEROPENEM
     Indication: Mycobacterial infection
     Dosage: LAST ADMINISTRATION DATE: NOV-2022
     Route: 042
     Dates: start: 202105
  9. MINOCYCLINE [Concomitant]
     Active Substance: MINOCYCLINE HYDROCHLORIDE
     Indication: Mycobacterial infection
     Dosage: LAST ADMINISTRATION DATE: NOV-2022
     Route: 048
     Dates: start: 202105
  10. METOCLOPRAMIDE [Concomitant]
     Active Substance: METOCLOPRAMIDE
     Indication: Nausea
     Dosage: ORAL/IV
     Dates: start: 20221004, end: 20221111
  11. ALBUTEROL [Concomitant]
     Active Substance: ALBUTEROL
     Indication: Dyspnoea
     Dosage: LAST ADMINISTRATION DATE: NOV-2022
  12. ALBUTEROL [Concomitant]
     Active Substance: ALBUTEROL
     Indication: Wheezing
  13. TIGECYCLINE [Concomitant]
     Active Substance: TIGECYCLINE
     Indication: Mycobacterial infection
     Route: 042
     Dates: start: 20220903, end: 20221019

REACTIONS (4)
  - Death [Fatal]
  - Tremor [Recovering/Resolving]
  - Treatment failure [Unknown]
  - Product dose omission issue [Unknown]

NARRATIVE: CASE EVENT DATE: 20220903
